FAERS Safety Report 19540291 (Version 2)
Quarter: 2021Q4

REPORT INFORMATION
  Report Type: Spontaneous
  Country: US (occurrence: US)
  Receive Date: 20210713
  Receipt Date: 20211004
  Transmission Date: 20220303
  Serious: Yes (Other)
  Sender: FDA-Public Use
  Company Number: US-DRREDDYS-SPO/USA/21/0137356

PATIENT
  Age: 57 Year
  Sex: Female

DRUGS (9)
  1. PREGABALIN [Interacting]
     Active Substance: PREGABALIN
     Indication: Diabetic neuropathy
     Dosage: 25 MG ONCE DAILY AT BEDTIME
  2. PREGABALIN [Interacting]
     Active Substance: PREGABALIN
  3. GABAPENTIN [Interacting]
     Active Substance: GABAPENTIN
     Indication: Diabetic neuropathy
     Dosage: 300 MG PER DAY
  4. GABAPENTIN [Interacting]
     Active Substance: GABAPENTIN
     Dosage: GABAPENTIN 100 MG ONCE DAILY AT BEDTIME FOR A WEEK
  5. RAMIPRIL [Concomitant]
     Active Substance: RAMIPRIL
     Indication: Hypertension
  6. METFORMIN [Concomitant]
     Active Substance: METFORMIN HYDROCHLORIDE
     Indication: Type 2 diabetes mellitus
  7. VITAMIN D  1000 Units [Concomitant]
     Indication: Product used for unknown indication
     Dosage: 1000 UNITS
  8. VITAMIN B12 1000 microgram [Concomitant]
     Indication: Product used for unknown indication
  9. GLICLAZIDE [Concomitant]
     Active Substance: GLICLAZIDE
     Indication: Type 2 diabetes mellitus
     Dosage: GLICLAZIDE MR 30 MG TWICE DAILY

REACTIONS (6)
  - Dizziness [Recovered/Resolved]
  - Somnolence [Recovered/Resolved]
  - Drug interaction [Recovered/Resolved]
  - Fatigue [Recovered/Resolved]
  - Ataxia [Recovered/Resolved]
  - Product prescribing error [Recovered/Resolved]
